FAERS Safety Report 21121216 (Version 1)
Quarter: 2022Q3

REPORT INFORMATION
  Report Type: Spontaneous
  Country: US (occurrence: US)
  Receive Date: 20220722
  Receipt Date: 20220722
  Transmission Date: 20221027
  Serious: No
  Sender: FDA-Public Use
  Company Number: US-PFIZER INC-PV202200027323

PATIENT
  Age: 73 Year
  Sex: Female

DRUGS (7)
  1. IBRANCE [Suspect]
     Active Substance: PALBOCICLIB
     Indication: Breast cancer female
     Dosage: 125 MG, CYCLIC (DAILY FOR 21 DAYS)
     Route: 048
     Dates: start: 20200528
  2. ATENOLOL [Concomitant]
     Active Substance: ATENOLOL
     Dosage: 50 MG
  3. FARXIGA [Concomitant]
     Active Substance: DAPAGLIFLOZIN PROPANEDIOL
     Dosage: 10 MG
  4. GINKGO [Concomitant]
     Active Substance: GINKGO
     Dosage: 60 MG
  5. GLUCOS [Concomitant]
     Dosage: UNK (GLUCOS/CHOND CAP 500-400)
  6. PRILOSEC [Concomitant]
     Active Substance: OMEPRAZOLE MAGNESIUM
     Dosage: 20 MG
  7. TYLENOL [Concomitant]
     Active Substance: ACETAMINOPHEN
     Dosage: 500 MG

REACTIONS (2)
  - Stomatitis [Unknown]
  - Constipation [Unknown]

NARRATIVE: CASE EVENT DATE: 20220101
